FAERS Safety Report 9168772 (Version 3)
Quarter: 2013Q2

REPORT INFORMATION
  Report Type: Spontaneous
  Country: JP (occurrence: JP)
  Receive Date: 20130318
  Receipt Date: 20130424
  Transmission Date: 20140414
  Serious: Yes (Life-Threatening, Hospitalization)
  Sender: FDA-Public Use
  Company Number: JP-B.I. PHARMACEUTICALS,INC./RIDGEFIELD-2013-BI-04536NB

PATIENT
  Age: 84 Year
  Sex: Male
  Weight: 55 kg

DRUGS (6)
  1. PRADAXA [Suspect]
     Indication: ATRIAL FIBRILLATION
     Dosage: 150 MG
     Route: 048
     Dates: start: 20120606, end: 20130217
  2. BAYASPIRIN [Suspect]
     Indication: MYOCARDIAL INFARCTION
     Dosage: 100 MG
     Route: 048
     Dates: start: 20060120
  3. NORVASC [Concomitant]
     Indication: MYOCARDIAL INFARCTION
     Dosage: 5 MG
     Route: 048
     Dates: start: 20060120
  4. LIPITOR [Concomitant]
     Indication: MYOCARDIAL INFARCTION
     Dosage: 10 MG
     Route: 048
     Dates: start: 20060120
  5. MAINTATE [Concomitant]
     Indication: MYOCARDIAL INFARCTION
     Dosage: 5 MG
     Route: 048
     Dates: start: 20060120
  6. PARIET [Concomitant]
     Indication: PROPHYLAXIS
     Dosage: 10 MG
     Route: 048
     Dates: start: 20060120

REACTIONS (2)
  - Prostate cancer [Not Recovered/Not Resolved]
  - Subdural haemorrhage [Recovered/Resolved]
